FAERS Safety Report 6549972-X (Version None)
Quarter: 2010Q1

REPORT INFORMATION
  Report Type: 
  Country: None (occurrence: None)
  Receive Date: 20100125
  Receipt Date: 20100120
  Transmission Date: 20100710
  Serious: Yes (Hospitalization, Other)
  Sender: FDA-Public Use
  Company Number: US-BAYER-201011838NA

PATIENT
  Sex: Female

DRUGS (2)
  1. YAZ [Suspect]
     Indication: CONTRACEPTION
  2. YASMIN [Suspect]
     Indication: CONTRACEPTION

REACTIONS (4)
  - ARRHYTHMIA [None]
  - CHOLECYSTITIS [None]
  - ELECTROLYTE IMBALANCE [None]
  - SYNCOPE [None]
